FAERS Safety Report 9868960 (Version 1)
Quarter: 2014Q1

REPORT INFORMATION
  Report Type: Spontaneous
  Country: GB (occurrence: GB)
  Receive Date: 20140205
  Receipt Date: 20140205
  Transmission Date: 20141002
  Serious: Yes (Other)
  Sender: FDA-Public Use
  Company Number: GB-ROCHE-1343959

PATIENT
  Age: 45 Year
  Sex: Female

DRUGS (5)
  1. ALTEPLASE [Suspect]
     Indication: CEREBRAL ISCHAEMIA
     Dosage: DOSE PER APPLICATION: 0.9MG/KG WITHIN 60 MINUTES OF SYMPTOM ONSET.
     Route: 042
  2. PREDNISOLONE [Concomitant]
  3. METHOTREXATE [Concomitant]
  4. PHENOXYMETHYLPENICILLIN [Concomitant]
  5. FOLIC ACID [Concomitant]

REACTIONS (3)
  - Sickle cell anaemia with crisis [Unknown]
  - Haemorrhagic transformation stroke [Unknown]
  - Pain [Unknown]
